FAERS Safety Report 8196408-1 (Version None)
Quarter: 2012Q1

REPORT INFORMATION
  Report Type: 
  Country: None (occurrence: None)
  Receive Date: 20120307
  Receipt Date: 20120307
  Transmission Date: 20120608
  Serious: Yes (Other)
  Sender: FDA-Public Use
  Company Number: None

PATIENT
  Sex: Male
  Weight: 106.1417 kg

DRUGS (1)
  1. PEGASYS [Suspect]
     Indication: HEPATITIS C
     Dosage: 180MCG  WEEKLY SUBCUTANEOUS
     Route: 058
     Dates: start: 20111207

REACTIONS (1)
  - HYPERTRIGLYCERIDAEMIA [None]
